FAERS Safety Report 5427986-0 (Version None)
Quarter: 2007Q3

REPORT INFORMATION
  Report Type: 
  Country: None (occurrence: None)
  Receive Date: 20070828
  Receipt Date: 20070816
  Transmission Date: 20080115
  Serious: Yes (Death)
  Sender: FDA-Public Use
  Company Number: CH-SANOFI-SYNTHELABO-A01200709188

PATIENT
  Age: 0 Day

DRUGS (5)
  1. CITALOPRAM [Suspect]
     Indication: DRUG USE FOR UNKNOWN INDICATION
     Route: 064
     Dates: end: 20070629
  2. TRUXAL [Suspect]
     Indication: DRUG USE FOR UNKNOWN INDICATION
     Route: 064
  3. TRUXAL [Suspect]
     Route: 064
  4. DALMADORM [Suspect]
     Indication: SLEEP DISORDER
     Route: 064
     Dates: end: 20070410
  5. STILNOX [Suspect]
     Indication: SLEEP DISORDER
     Dosage: 10 MG
     Route: 064
     Dates: start: 20070410, end: 20070629

REACTIONS (7)
  - ABORTION INDUCED [None]
  - CONGENITAL JAW MALFORMATION [None]
  - CONGENITAL MUSCULOSKELETAL ANOMALY [None]
  - CONGENITAL NEUROLOGICAL DISORDER [None]
  - CONGENITAL SCOLIOSIS [None]
  - DRUG EXPOSURE DURING PREGNANCY [None]
  - MULTIPLE CONGENITAL ABNORMALITIES [None]
